FAERS Safety Report 13191417 (Version 1)
Quarter: 2017Q1

REPORT INFORMATION
  Report Type: Spontaneous
  Country: JP (occurrence: JP)
  Receive Date: 20170207
  Receipt Date: 20170207
  Transmission Date: 20170428
  Serious: Yes (Hospitalization, Other)
  Sender: FDA-Public Use
  Company Number: JP-SCIEGEN PHARMACEUTICALS INC-2017SCILIT00043

PATIENT

DRUGS (2)
  1. LAMOTRIGINE TABLETS [Suspect]
     Active Substance: LAMOTRIGINE
     Dosage: 200 MG, QD
     Route: 065
  2. LAMOTRIGINE TABLETS [Suspect]
     Active Substance: LAMOTRIGINE
     Indication: EPILEPSY
     Dosage: UNKNOWN
     Route: 065

REACTIONS (6)
  - Hypogammaglobulinaemia [Unknown]
  - Immunoglobulins decreased [None]
  - Selective IgG subclass deficiency [Not Recovered/Not Resolved]
  - Rash [Unknown]
  - Selective IgA immunodeficiency [Not Recovered/Not Resolved]
  - Pyelonephritis acute [Unknown]
